FAERS Safety Report 11135402 (Version 1)
Quarter: 2015Q2

REPORT INFORMATION
  Report Type: Spontaneous
  Country: US (occurrence: None)
  Receive Date: 20150522
  Receipt Date: 20150522
  Transmission Date: 20150821
  Serious: Yes (Hospitalization)
  Sender: FDA-Public Use
  Company Number: None

PATIENT
  Age: 1 Day
  Sex: Female
  Weight: 4.08 kg

DRUGS (1)
  1. METHERGINE [Suspect]
     Active Substance: METHYLERGONOVINE MALEATE
     Indication: WRONG DRUG ADMINISTERED
     Dates: start: 20141021

REACTIONS (4)
  - Seizure [None]
  - Mental status changes [None]
  - Product label confusion [None]
  - Wrong drug administered [None]

NARRATIVE: CASE EVENT DATE: 20141021
